FAERS Safety Report 4469974-7 (Version None)
Quarter: 2004Q3

REPORT INFORMATION
  Report Type: 
  Country: None (occurrence: None)
  Receive Date: 20040920
  Receipt Date: 20040709
  Transmission Date: 20050211
  Serious: No
  Sender: FDA-Public Use
  Company Number: A-US2004-06788

PATIENT
  Age: 53 Year
  Sex: Female

DRUGS (13)
  1. TRACLEER [Suspect]
     Indication: PULMONARY HYPERTENSION
     Dosage: 62.5 MG, BID, ORAL
     Route: 048
     Dates: start: 20040706
  2. NEXIUM [Concomitant]
  3. ISOSORBIDE (ISOSORBIDE) [Concomitant]
  4. EVISTA [Concomitant]
  5. PAXIL [Concomitant]
  6. NORVASC [Concomitant]
  7. ZOCOR [Concomitant]
  8. LOPRESSOR [Concomitant]
  9. DITROPAN [Concomitant]
  10. LASIX [Concomitant]
  11. CORTAB (DIPYRIDAMOLE) [Concomitant]
  12. ACETYLSALICYLIC ACID SRT [Concomitant]
  13. MULTIVITAMINS (ASCORBIC ACID, ERGOCALCIFEROL, FOLIC ACID, NICOTINAMIDE [Concomitant]

REACTIONS (1)
  - DIZZINESS [None]
